FAERS Safety Report 12966221 (Version 1)
Quarter: 2016Q4

REPORT INFORMATION
  Report Type: Spontaneous
  Country: US (occurrence: US)
  Receive Date: 20161118
  Receipt Date: 20161118
  Transmission Date: 20170207
  Serious: Yes (Hospitalization)
  Sender: FDA-Public Use
  Company Number: None

PATIENT
  Age: 63 Year
  Sex: Male
  Weight: 65.5 kg

DRUGS (2)
  1. RIFAMPIN. [Suspect]
     Active Substance: RIFAMPIN
     Route: 048
     Dates: start: 20160906, end: 20160914
  2. NAFCILLIN [Suspect]
     Active Substance: NAFCILLIN\NAFCILLIN SODIUM
     Indication: DEVICE RELATED INFECTION
     Route: 058
     Dates: start: 20160906, end: 20160914

REACTIONS (4)
  - Hyperbilirubinaemia [None]
  - Pruritus [None]
  - Anaemia [None]
  - Urticaria [None]

NARRATIVE: CASE EVENT DATE: 20160914
